FAERS Safety Report 19184502 (Version 2)
Quarter: 2021Q2

REPORT INFORMATION
  Report Type: Spontaneous
  Country: US (occurrence: US)
  Receive Date: 20210427
  Receipt Date: 20210512
  Transmission Date: 20210717
  Serious: Yes (Death, Life-Threatening, Hospitalization, Other)
  Sender: FDA-Public Use
  Company Number: US-ACCORD-223484

PATIENT
  Age: 72 Year
  Sex: Male

DRUGS (6)
  1. CYCLOPHOSPHAMIDE/CYCLOPHOSPHAMIDE MONOHYDRATE [Suspect]
     Active Substance: CYCLOPHOSPHAMIDE
     Indication: RICHTER^S SYNDROME
  2. VINCRISTINE [Suspect]
     Active Substance: VINCRISTINE
     Indication: RICHTER^S SYNDROME
  3. ETOPOSIDE. [Suspect]
     Active Substance: ETOPOSIDE
     Indication: RICHTER^S SYNDROME
  4. PREDNISONE. [Suspect]
     Active Substance: PREDNISONE
     Indication: RICHTER^S SYNDROME
  5. RITUXIMAB. [Suspect]
     Active Substance: RITUXIMAB
     Indication: RICHTER^S SYNDROME
  6. DOXORUBICIN [Suspect]
     Active Substance: DOXORUBICIN
     Indication: RICHTER^S SYNDROME

REACTIONS (7)
  - Tumour lysis syndrome [Unknown]
  - Febrile neutropenia [Unknown]
  - Posterior reversible encephalopathy syndrome [Unknown]
  - Pseudomonas infection [Fatal]
  - Off label use [Unknown]
  - Renal failure [Fatal]
  - Klebsiella infection [Fatal]
